FAERS Safety Report 4935377-1 (Version None)
Quarter: 2006Q1

REPORT INFORMATION
  Report Type: 
  Country: None (occurrence: None)
  Receive Date: 20060307
  Receipt Date: 20060228
  Transmission Date: 20060701
  Serious: Yes (Hospitalization)
  Sender: FDA-Public Use
  Company Number: US-GLAXOSMITHKLINE-A0595551A

PATIENT
  Age: 27 Year
  Sex: Female

DRUGS (2)
  1. PAXIL [Suspect]
     Dosage: 20MG PER DAY
     Route: 048
     Dates: start: 20001201
  2. NO CONCURRENT MEDICATION [Concomitant]

REACTIONS (10)
  - CERVICAL INCOMPETENCE [None]
  - DRUG EXPOSURE DURING PREGNANCY [None]
  - FEELING ABNORMAL [None]
  - INSOMNIA [None]
  - MYALGIA [None]
  - NORMAL DELIVERY [None]
  - PREMATURE LABOUR [None]
  - RESTLESSNESS [None]
  - WEIGHT INCREASED [None]
  - WEIGHT LOSS POOR [None]
